FAERS Safety Report 16346632 (Version 2)
Quarter: 2019Q2

REPORT INFORMATION
  Report Type: Report from Study
  Country: US (occurrence: US)
  Receive Date: 20190523
  Receipt Date: 20190618
  Transmission Date: 20190711
  Serious: No
  Sender: FDA-Public Use
  Company Number: US-B.I. PHARMACEUTICALS,INC./RIDGEFIELD-2019-BI-022608

PATIENT
  Age: 79 Year
  Sex: Male

DRUGS (1)
  1. OFEV [Suspect]
     Active Substance: NINTEDANIB
     Indication: IDIOPATHIC PULMONARY FIBROSIS
     Route: 048
     Dates: start: 20190417

REACTIONS (5)
  - Sluggishness [Not Recovered/Not Resolved]
  - Secretion discharge [Unknown]
  - Gastrooesophageal reflux disease [Not Recovered/Not Resolved]
  - Sinus disorder [Unknown]
  - Cough [Unknown]

NARRATIVE: CASE EVENT DATE: 20190417
